FAERS Safety Report 13763720 (Version 2)
Quarter: 2017Q3

REPORT INFORMATION
  Report Type: Spontaneous
  Country: FR (occurrence: FR)
  Receive Date: 20170718
  Receipt Date: 20170804
  Transmission Date: 20171127
  Serious: No
  Sender: FDA-Public Use
  Company Number: PHHY2017FR103709

PATIENT
  Age: 47 Year
  Sex: Female

DRUGS (4)
  1. MYFORTIC [Suspect]
     Active Substance: MYCOPHENOLATE SODIUM
     Indication: PANCREAS TRANSPLANT
     Dosage: 2 DF, BID
     Route: 048
     Dates: start: 201705
  2. ADVAGRAF [Concomitant]
     Active Substance: TACROLIMUS
     Indication: RENAL TRANSPLANT
     Dosage: 1 MG, QD
     Route: 065
     Dates: start: 200702
  3. ADVAGRAF [Concomitant]
     Active Substance: TACROLIMUS
     Indication: PANCREAS TRANSPLANT
     Dosage: 5 MG, QD
     Route: 065
  4. MYFORTIC [Suspect]
     Active Substance: MYCOPHENOLATE SODIUM
     Indication: RENAL TRANSPLANT
     Dosage: 360 MG, BID
     Route: 065

REACTIONS (8)
  - Abdominal pain upper [Recovering/Resolving]
  - Fatigue [Unknown]
  - Somnolence [Not Recovered/Not Resolved]
  - Product odour abnormal [Unknown]
  - Headache [Recovering/Resolving]
  - Hyperhidrosis [Recovered/Resolved]
  - Eye pain [Unknown]
  - Nausea [Recovering/Resolving]

NARRATIVE: CASE EVENT DATE: 201705
